FAERS Safety Report 24028439 (Version 5)
Quarter: 2025Q1

REPORT INFORMATION
  Report Type: Report from Study
  Country: US (occurrence: US)
  Receive Date: 20240628
  Receipt Date: 20250101
  Transmission Date: 20250409
  Serious: Yes (Hospitalization, Other)
  Sender: TAKEDA
  Company Number: US-TAKEDA-2024TUS060978

PATIENT
  Sex: Male
  Weight: 70 kg

DRUGS (60)
  1. TEDUGLUTIDE [Suspect]
     Active Substance: TEDUGLUTIDE
     Indication: Short-bowel syndrome
     Dosage: 3 MILLIGRAM, QD
     Dates: start: 20240606
  2. TEDUGLUTIDE [Suspect]
     Active Substance: TEDUGLUTIDE
     Dosage: 3 MILLIGRAM, QD
  3. TEDUGLUTIDE [Suspect]
     Active Substance: TEDUGLUTIDE
  4. TEDUGLUTIDE [Suspect]
     Active Substance: TEDUGLUTIDE
     Dosage: 0.3 MILLILITER, QD
  5. TEDUGLUTIDE [Suspect]
     Active Substance: TEDUGLUTIDE
     Dosage: 3 MILLIGRAM, QD
  6. TRIAMCINOLONE ACETONIDE [Concomitant]
     Active Substance: TRIAMCINOLONE ACETONIDE
  7. SUCRALFATE [Concomitant]
     Active Substance: SUCRALFATE
  8. SODIUM CHLORIDE [Concomitant]
     Active Substance: SODIUM CHLORIDE
  9. COMPAZINE [Concomitant]
     Active Substance: PROCHLORPERAZINE MALEATE
  10. PREDNISONE [Concomitant]
     Active Substance: PREDNISONE
  11. PENTAMIDINE ISETHIONATE [Concomitant]
     Active Substance: PENTAMIDINE ISETHIONATE
  12. TPN [Concomitant]
     Active Substance: AMINO ACIDS\DEXTROSE\ELECTROLYTES NOS\SOYBEAN OIL
  13. OXYMETAZOLINE HYDROCHLORIDE [Concomitant]
     Active Substance: OXYMETAZOLINE HYDROCHLORIDE
  14. OMEPRAZOLE [Concomitant]
     Active Substance: OMEPRAZOLE
  15. PYRUKYND [Concomitant]
     Active Substance: MITAPIVAT
  16. LUBRIDERM DAILY UV [Concomitant]
  17. MICONAZOLE [Concomitant]
     Active Substance: MICONAZOLE
  18. METHOXSALEN [Concomitant]
     Active Substance: METHOXSALEN
  19. LORAZEPAM [Concomitant]
     Active Substance: LORAZEPAM
  20. LIDOCAINE [Concomitant]
     Active Substance: LIDOCAINE
  21. LEVOFLOXACIN [Concomitant]
     Active Substance: LEVOFLOXACIN
  22. DILAUDID [Concomitant]
     Active Substance: HYDROMORPHONE HYDROCHLORIDE
  23. GRANISETRON HYDROCHLORIDE [Concomitant]
     Active Substance: GRANISETRON HYDROCHLORIDE
  24. FUROSEMIDE [Concomitant]
     Active Substance: FUROSEMIDE
  25. BENADRYL [Concomitant]
     Active Substance: DIPHENHYDRAMINE HYDROCHLORIDE
  26. BENTYL [Concomitant]
     Active Substance: DICYCLOMINE HYDROCHLORIDE
  27. VOLTAREN ARTHRITIS PAIN [Concomitant]
     Active Substance: DICLOFENAC SODIUM
  28. DEXTROSE\WATER [Concomitant]
     Active Substance: DEXTROSE\WATER
  29. RESTASIS [Concomitant]
     Active Substance: CYCLOSPORINE
  30. REFRESH PLUS [Concomitant]
     Active Substance: CARBOXYMETHYLCELLULOSE SODIUM
  31. DEBROX [Concomitant]
     Active Substance: CARBAMIDE PEROXIDE
  32. BUPRENORPHINE [Concomitant]
     Active Substance: BUPRENORPHINE
  33. ELIQUIS [Concomitant]
     Active Substance: APIXABAN
  34. ANTICOAGULANT SODIUM CITRATE [Concomitant]
     Active Substance: SODIUM CITRATE
  35. ALBUTEROL [Concomitant]
     Active Substance: ALBUTEROL
  36. ACETAMINOPHEN [Concomitant]
     Active Substance: ACETAMINOPHEN
  37. URSODIOL [Concomitant]
     Active Substance: URSODIOL
  38. TACROLIMUS [Concomitant]
     Active Substance: TACROLIMUS
  39. SPIRONOLACTONE [Concomitant]
     Active Substance: SPIRONOLACTONE
  40. SIMETHICONE (DIMETHICONE) [Concomitant]
     Active Substance: DIMETHICONE
  41. SENNA [Concomitant]
     Active Substance: SENNOSIDES
  42. POSACONAZOLE [Concomitant]
     Active Substance: POSACONAZOLE
  43. MIRALAX [Concomitant]
     Active Substance: POLYETHYLENE GLYCOL 3350
  44. NYSTATIN [Concomitant]
     Active Substance: NYSTATIN
  45. OXYBUTYNIN CHLORIDE [Concomitant]
     Active Substance: OXYBUTYNIN CHLORIDE
  46. NALOXONE HCL [Concomitant]
     Active Substance: NALOXONE HYDROCHLORIDE
  47. MORPHINE SULFATE [Concomitant]
     Active Substance: MORPHINE SULFATE
  48. METOCLOPRAMIDE HYDROCHLORIDE [Concomitant]
     Active Substance: METOCLOPRAMIDE HYDROCHLORIDE
  49. MELATONIN [Concomitant]
     Active Substance: MELATONIN
  50. MAGNESIUM SULFATE [Concomitant]
     Active Substance: MAGNESIUM SULFATE
  51. HEPARIN [Concomitant]
     Active Substance: HEPARIN SODIUM
  52. DRISDOL [Concomitant]
     Active Substance: ERGOCALCIFEROL
  53. DICYCLOMINE HYDROCHLORIDE [Concomitant]
     Active Substance: DICYCLOMINE HYDROCHLORIDE
  54. CYCLOSPORINE [Concomitant]
     Active Substance: CYCLOSPORINE
  55. BUDESONIDE [Concomitant]
     Active Substance: BUDESONIDE
  56. ACYCLOVIR [Concomitant]
     Active Substance: ACYCLOVIR
  57. ALBUTEROL SULFATE [Concomitant]
     Active Substance: ALBUTEROL SULFATE
  58. MAGNESIUM [Concomitant]
     Active Substance: MAGNESIUM
  59. CAMPHOR [Concomitant]
     Active Substance: CAMPHOR
  60. LIDOCAINE\PHENYLEPHRINE [Concomitant]
     Active Substance: LIDOCAINE\PHENYLEPHRINE

REACTIONS (9)
  - Abdominal discomfort [Not Recovered/Not Resolved]
  - Vascular device infection [Unknown]
  - Graft versus host disease [Not Recovered/Not Resolved]
  - Abdominal wall oedema [Unknown]
  - Dyspepsia [Recovered/Resolved]
  - Off label use [Unknown]
  - Anxiety [Unknown]
  - Oedema peripheral [Unknown]
  - Abdominal pain [Not Recovered/Not Resolved]
